FAERS Safety Report 9075235 (Version 2)
Quarter: 2013Q2

REPORT INFORMATION
  Report Type: Report from Study
  Country: US (occurrence: US)
  Receive Date: 20130131
  Receipt Date: 20130515
  Transmission Date: 20140414
  Serious: Yes (Other)
  Sender: FDA-Public Use
  Company Number: US-ABBOTT-12P-163-1006684-00

PATIENT
  Age: 63 Year
  Sex: Female
  Weight: 75.82 kg

DRUGS (8)
  1. HUMIRA [Suspect]
     Indication: ANKYLOSING SPONDYLITIS
     Dates: start: 2011, end: 20121105
  2. AMLODIPINE [Concomitant]
     Indication: HYPERTENSION
  3. HYDROCHLOROTHIAZIDE [Concomitant]
     Indication: HYPERTENSION
  4. PREDNISONE [Concomitant]
     Indication: ANKYLOSING SPONDYLITIS
  5. ZYRTEC [Concomitant]
     Indication: HYPERSENSITIVITY
  6. BIOFLEX [Concomitant]
     Indication: PRODUCT USED FOR UNKNOWN INDICATION
  7. LOTREL [Concomitant]
     Indication: HYPERTENSION
  8. IRON [Concomitant]
     Indication: ANAEMIA

REACTIONS (2)
  - Lymphadenopathy [Recovered/Resolved]
  - Thyroid cancer [Recovered/Resolved]
